FAERS Safety Report 17423860 (Version 3)
Quarter: 2021Q4

REPORT INFORMATION
  Report Type: Report from Study
  Country: FR (occurrence: None)
  Receive Date: 20200217
  Receipt Date: 20211114
  Transmission Date: 20220303
  Serious: Yes (Hospitalization)
  Sender: FDA-Public Use
  Company Number: FR-ROCHE-2542584

PATIENT
  Age: 69 Year
  Sex: Female

DRUGS (2)
  1. ATEZOLIZUMAB [Suspect]
     Active Substance: ATEZOLIZUMAB
     Indication: Ovarian cancer
     Dosage: ON 10/JAN/2020 PATIENT RECEIVED LAST DOSE OF BLINDED ATEZOLIZUMAB BEFORE THE SAE.
     Route: 041
     Dates: start: 20190524
  2. BEVACIZUMAB [Suspect]
     Active Substance: BEVACIZUMAB
     Indication: Ovarian cancer
     Dosage: ON 10/JAN/2020 PATIENT RECEIVED LAST DOSE OF BEVACIZUMAB (15 MG/KG) BEFORE THE SAE
     Route: 042
     Dates: start: 20190524

REACTIONS (2)
  - Diarrhoea [Recovered/Resolved]
  - Renal failure [Recovered/Resolved with Sequelae]

NARRATIVE: CASE EVENT DATE: 20200130
